FAERS Safety Report 7366249-3 (Version None)
Quarter: 2011Q1

REPORT INFORMATION
  Report Type: 
  Country: None (occurrence: None)
  Receive Date: 20110322
  Receipt Date: 20110308
  Transmission Date: 20110831
  Serious: Yes (Hospitalization)
  Sender: FDA-Public Use
  Company Number: US-JNJFOC-20100407400

PATIENT
  Sex: Male
  Weight: 82 kg

DRUGS (8)
  1. REMICADE [Suspect]
     Dosage: RECEIVED 8 INFUSIONS
     Route: 042
  2. REMICADE [Suspect]
     Indication: INFLAMMATORY BOWEL DISEASE
     Dosage: RECEIVED 8 INFUSIONS
     Route: 042
  3. MERCAPTOPURINE [Concomitant]
  4. BACTRIM [Concomitant]
  5. REMICADE [Suspect]
     Route: 042
  6. REMICADE [Suspect]
     Indication: COLITIS
     Dosage: RECEIVED 8 INFUSIONS
     Route: 042
  7. REMICADE [Suspect]
     Indication: COLITIS ULCERATIVE
     Route: 042
  8. REMICADE [Suspect]
     Route: 042

REACTIONS (1)
  - INFLAMMATORY BOWEL DISEASE [None]
